FAERS Safety Report 18525627 (Version 3)
Quarter: 2021Q1

REPORT INFORMATION
  Report Type: Report from Study
  Country: None (occurrence: US)
  Receive Date: 20201119
  Receipt Date: 20210324
  Transmission Date: 20210419
  Serious: Yes (Other)
  Sender: FDA-Public Use
  Company Number: US-ABBVIE-20K-163-3491426-00

PATIENT
  Sex: Female

DRUGS (3)
  1. HUMIRA [Suspect]
     Active Substance: ADALIMUMAB
     Indication: RHEUMATOID ARTHRITIS
     Route: 058
     Dates: start: 2010, end: 201909
  2. HUMIRA [Suspect]
     Active Substance: ADALIMUMAB
     Route: 058
     Dates: start: 202001, end: 20200401
  3. HUMIRA [Suspect]
     Active Substance: ADALIMUMAB
     Route: 058
     Dates: start: 202005

REACTIONS (14)
  - Colon cancer [Unknown]
  - Grip strength decreased [Unknown]
  - Osteoarthritis [Unknown]
  - Exostosis [Unknown]
  - Arthralgia [Not Recovered/Not Resolved]
  - Varicose vein [Unknown]
  - Inflammation [Not Recovered/Not Resolved]
  - Bronchitis [Unknown]
  - Gait inability [Not Recovered/Not Resolved]
  - Peripheral swelling [Unknown]
  - Asthma [Not Recovered/Not Resolved]
  - Joint swelling [Recovering/Resolving]
  - Rheumatoid arthritis [Recovering/Resolving]
  - Drug ineffective [Recovering/Resolving]

NARRATIVE: CASE EVENT DATE: 2020
